FAERS Safety Report 10792422 (Version 2)
Quarter: 2015Q2

REPORT INFORMATION
  Report Type: Report from Study
  Country: BR (occurrence: BR)
  Receive Date: 20150213
  Receipt Date: 20150417
  Transmission Date: 20150821
  Serious: Yes (Other)
  Sender: FDA-Public Use
  Company Number: BR-SA-2015SA017042

PATIENT
  Sex: Female
  Weight: 60 kg

DRUGS (3)
  1. CLIKSTAR [Concomitant]
     Active Substance: CLIKSTAR
     Indication: DEVICE THERAPY
  2. LANTUS [Suspect]
     Active Substance: INSULIN GLARGINE
     Indication: TYPE 2 DIABETES MELLITUS
     Route: 065
  3. GLIFAGE [Concomitant]
     Active Substance: METFORMIN HYDROCHLORIDE
     Dosage: STRENGTH: 750 MG
     Dates: start: 2000

REACTIONS (9)
  - Foot fracture [Not Recovered/Not Resolved]
  - Confusional state [Unknown]
  - Accident [Unknown]
  - Gait disturbance [Not Recovered/Not Resolved]
  - Walking aid user [Unknown]
  - Upper limb fracture [Unknown]
  - Hypertension [Unknown]
  - Stent placement [Unknown]
  - Poor peripheral circulation [Unknown]

NARRATIVE: CASE EVENT DATE: 1966
